FAERS Safety Report 5572652-4 (Version None)
Quarter: 2007Q4

REPORT INFORMATION
  Report Type: 
  Country: None (occurrence: None)
  Receive Date: 20071222
  Receipt Date: 20071213
  Transmission Date: 20080405
  Serious: Yes (Other)
  Sender: FDA-Public Use
  Company Number: US-PFIZER INC-2007105267

PATIENT

DRUGS (1)
  1. CLINDAMYCIN PALMITATE HYDROCHLORIDE [Suspect]
     Indication: POSTOPERATIVE CARE
     Dates: start: 20071101, end: 20071201

REACTIONS (2)
  - PYREXIA [None]
  - RASH [None]
